FAERS Safety Report 15118764 (Version 1)
Quarter: 2018Q3

REPORT INFORMATION
  Report Type: Report from Study
  Country: JP (occurrence: JP)
  Receive Date: 20180709
  Receipt Date: 20180709
  Transmission Date: 20181010
  Serious: Yes (Other)
  Sender: FDA-Public Use
  Company Number: JP-ROCHE-2149641

PATIENT

DRUGS (1)
  1. RITUXIMAB. [Suspect]
     Active Substance: RITUXIMAB
     Indication: NEPHROTIC SYNDROME
     Route: 041

REACTIONS (8)
  - Herpes zoster [Unknown]
  - Impetigo [Unknown]
  - Sepsis [Unknown]
  - Oral herpes [Unknown]
  - Blood immunoglobulin G decreased [Unknown]
  - Gastroenteritis [Unknown]
  - Cystitis haemorrhagic [Unknown]
  - Upper respiratory tract infection [Unknown]
